FAERS Safety Report 22888119 (Version 2)
Quarter: 2023Q4

REPORT INFORMATION
  Report Type: Spontaneous
  Country: JP (occurrence: JP)
  Receive Date: 20230831
  Receipt Date: 20231010
  Transmission Date: 20240109
  Serious: Yes (Other)
  Sender: FDA-Public Use
  Company Number: JP-2023-0308

PATIENT
  Sex: Female

DRUGS (2)
  1. BENDAMUSTINE HYDROCHLORIDE [Suspect]
     Active Substance: BENDAMUSTINE HYDROCHLORIDE
     Indication: B-cell lymphoma
     Dosage: UNK, GB THERAPY
     Route: 042
  2. GAZYVA [Concomitant]
     Active Substance: OBINUTUZUMAB
     Indication: B-cell lymphoma
     Dosage: UNK, GB THERAPY
     Route: 042

REACTIONS (1)
  - COVID-19 [Recovering/Resolving]
